FAERS Safety Report 4761153-9 (Version None)
Quarter: 2005Q3

REPORT INFORMATION
  Report Type: 
  Country: None (occurrence: None)
  Receive Date: 20050901
  Receipt Date: 20050819
  Transmission Date: 20060218
  Serious: Yes (Other)
  Sender: FDA-Public Use
  Company Number: 2005S1007990

PATIENT
  Age: 61 Year
  Sex: Female
  Weight: 56.6996 kg

DRUGS (3)
  1. VERAPAMIL [Suspect]
     Indication: MIGRAINE
     Dosage: 80 MG; TID; PO
     Route: 048
     Dates: start: 20050728, end: 20050817
  2. ALENDRONATE SODIUM [Concomitant]
  3. ESTROGENS CONJUGATED [Concomitant]

REACTIONS (5)
  - CHILLS [None]
  - HEPATITIS [None]
  - INFLUENZA [None]
  - MALAISE [None]
  - PYREXIA [None]
